FAERS Safety Report 26151683 (Version 1)
Quarter: 2025Q4

REPORT INFORMATION
  Report Type: Spontaneous
  Country: US (occurrence: US)
  Receive Date: 20251212
  Receipt Date: 20251212
  Transmission Date: 20260118
  Serious: Yes (Hospitalization, Other)
  Sender: CB FLEET
  Company Number: US-PRESTIGE-202512-US-003883

PATIENT
  Age: 84 Year
  Sex: Female

DRUGS (1)
  1. CARBAMIDE PEROXIDE [Suspect]
     Active Substance: CARBAMIDE PEROXIDE
     Indication: Excessive cerumen production
     Dosage: UNKNOWN DOSE
     Route: 001

REACTIONS (2)
  - Aggression [Recovered/Resolved]
  - Product prescribing error [None]
